FAERS Safety Report 12387018 (Version 1)
Quarter: 2016Q2

REPORT INFORMATION
  Report Type: Spontaneous
  Country: US (occurrence: US)
  Receive Date: 20160519
  Receipt Date: 20160519
  Transmission Date: 20160815
  Serious: No
  Sender: FDA-Public Use
  Company Number: US-ASTRAZENECA-2016SE49967

PATIENT
  Age: 49 Year
  Sex: Female

DRUGS (1)
  1. ZOMIG [Suspect]
     Active Substance: ZOLMITRIPTAN
     Route: 048

REACTIONS (4)
  - Dysphonia [Unknown]
  - Memory impairment [Unknown]
  - Panic attack [Unknown]
  - Drug hypersensitivity [Unknown]
